FAERS Safety Report 9350984 (Version 1)
Quarter: 2013Q2

REPORT INFORMATION
  Report Type: Spontaneous
  Country: US (occurrence: US)
  Receive Date: 20130617
  Receipt Date: 20130617
  Transmission Date: 20140414
  Serious: No
  Sender: FDA-Public Use
  Company Number: US-ROCHE-1236719

PATIENT
  Sex: Male

DRUGS (1)
  1. AVASTIN [Suspect]
     Indication: BRAIN NEOPLASM
     Route: 065
     Dates: start: 20130606

REACTIONS (7)
  - Personality change [Not Recovered/Not Resolved]
  - Eye movement disorder [Recovered/Resolved]
  - Social avoidant behaviour [Not Recovered/Not Resolved]
  - Social avoidant behaviour [Not Recovered/Not Resolved]
  - Hypertension [Recovered/Resolved]
  - Depression [Not Recovered/Not Resolved]
  - Confusional state [Not Recovered/Not Resolved]
